FAERS Safety Report 11386042 (Version 2)
Quarter: 2015Q3

REPORT INFORMATION
  Report Type: Spontaneous
  Country: DE (occurrence: DE)
  Receive Date: 20150817
  Receipt Date: 20150819
  Transmission Date: 20151125
  Serious: Yes (Hospitalization, Other)
  Sender: FDA-Public Use
  Company Number: PHHY2015DE095804

PATIENT
  Sex: Female

DRUGS (5)
  1. EXEMESTANE. [Concomitant]
     Active Substance: EXEMESTANE
     Indication: PRODUCT USED FOR UNKNOWN INDICATION
     Dosage: UNK
     Route: 065
  2. XGEVA [Concomitant]
     Active Substance: DENOSUMAB
     Indication: PRODUCT USED FOR UNKNOWN INDICATION
     Dosage: UNK
     Route: 065
  3. AFINITOR [Suspect]
     Active Substance: EVEROLIMUS
     Dosage: 1 DF, QOD (EVERY SECOND DAY)
     Route: 065
  4. AFINITOR [Suspect]
     Active Substance: EVEROLIMUS
     Dosage: 1 DF, EVERY THIRD DAY
     Route: 065
  5. AFINITOR [Suspect]
     Active Substance: EVEROLIMUS
     Indication: BREAST CANCER
     Dosage: 1 DF, QD
     Route: 065
     Dates: start: 20150211

REACTIONS (8)
  - Psychomotor hyperactivity [Unknown]
  - Fluid retention [Unknown]
  - Pleural effusion [Unknown]
  - Weight decreased [Unknown]
  - Cough [Recovering/Resolving]
  - Respiratory disorder [Recovering/Resolving]
  - Dyspnoea [Recovering/Resolving]
  - Euphoric mood [Unknown]
